FAERS Safety Report 7671824-2 (Version None)
Quarter: 2011Q3

REPORT INFORMATION
  Report Type: 
  Country: None (occurrence: None)
  Receive Date: 20110809
  Receipt Date: 20110729
  Transmission Date: 20111222
  Serious: No
  Sender: FDA-Public Use
  Company Number: SV-ROCHE-793293

PATIENT
  Sex: Female

DRUGS (2)
  1. DIANE 35 [Suspect]
     Indication: CONTRACEPTION
     Route: 048
  2. ISOTRETINOIN [Suspect]
     Indication: ACNE
     Route: 048
     Dates: start: 20110701, end: 20110714

REACTIONS (2)
  - NO ADVERSE EVENT [None]
  - PREGNANCY [None]
